FAERS Safety Report 4719447-9 (Version None)
Quarter: 2005Q3

REPORT INFORMATION
  Report Type: 
  Country: None (occurrence: None)
  Receive Date: 20050719
  Receipt Date: 20050708
  Transmission Date: 20060218
  Serious: Yes (Other)
  Sender: FDA-Public Use
  Company Number: 200512153GDS

PATIENT

DRUGS (4)
  1. DTIC-DOME [Suspect]
     Indication: HODGKIN'S DISEASE
  2. BLEOMYCIN [Suspect]
     Indication: HODGKIN'S DISEASE
  3. DOXORUBICIN HCL [Concomitant]
  4. VINBLASTINE [Concomitant]

REACTIONS (2)
  - EYE SWELLING [None]
  - RASH [None]
